FAERS Safety Report 5152217-9 (Version None)
Quarter: 2006Q4

REPORT INFORMATION
  Report Type: 
  Country: None (occurrence: None)
  Receive Date: 20061116
  Receipt Date: 20061107
  Transmission Date: 20070319
  Serious: Yes (Hospitalization)
  Sender: FDA-Public Use
  Company Number: AT-NOVOPROD-258534

PATIENT
  Age: 69 Year
  Sex: Male
  Weight: 65 kg

DRUGS (7)
  1. NOVOLOG MIX 70/30 [Suspect]
     Indication: DIABETES MELLITUS
     Dosage: UNK, TID
     Route: 058
     Dates: start: 20060727
  2. PANTOLOC                           /01263201/ [Concomitant]
     Dosage: 40 MG, UNK
     Route: 048
  3. FRAGMIN                            /00889602/ [Concomitant]
     Dosage: 5000 IE, BID
     Route: 058
  4. NOVONORM [Concomitant]
     Dosage: 2 MG, BID
     Route: 048
  5. RAMIPRIL [Concomitant]
     Dosage: 2.5 MG, QD
     Route: 048
  6. AUGMENTIN                          /00756801/ [Concomitant]
     Dosage: 2.2 MG, BID
     Route: 042
  7. LESCOL                             /01224501/ [Concomitant]
     Dosage: 40 MG, QD
     Route: 048

REACTIONS (1)
  - ACUTE MYOCARDIAL INFARCTION [None]
